FAERS Safety Report 6707376-0 (Version None)
Quarter: 2010Q2

REPORT INFORMATION
  Report Type: 
  Country: None (occurrence: None)
  Receive Date: 20100429
  Receipt Date: 20100420
  Transmission Date: 20101027
  Serious: Yes (Hospitalization)
  Sender: FDA-Public Use
  Company Number: 2010SP022693

PATIENT
  Age: 25 Year
  Sex: Male

DRUGS (6)
  1. MIRTAZAPINE [Suspect]
     Indication: DEPRESSION
     Dosage: 105 MG; PO
     Route: 048
     Dates: start: 20100415, end: 20100415
  2. GOODMIN     (BROTIZOLAM) [Suspect]
     Indication: DRUG USE FOR UNKNOWN INDICATION
     Dosage: 1.75 MG; ONCE; PO
     Route: 048
     Dates: start: 20100415, end: 20100415
  3. LEXOTAN (BROMAZEPAM) [Suspect]
     Indication: DRUG USE FOR UNKNOWN INDICATION
     Dosage: 28 MG; ONCE; PO
     Route: 048
     Dates: start: 20100415, end: 20100415
  4. SERTRALINE HYDROCHLORIDE [Concomitant]
  5. TRIHEXYPHENIDYL HCL [Concomitant]
  6. LORAZEPAM [Concomitant]

REACTIONS (6)
  - CONVULSION [None]
  - FEELING ABNORMAL [None]
  - LOSS OF CONSCIOUSNESS [None]
  - MULTIPLE DRUG OVERDOSE [None]
  - RESTLESSNESS [None]
  - SOMNOLENCE [None]
